FAERS Safety Report 5562365-7 (Version None)
Quarter: 2007Q4

REPORT INFORMATION
  Report Type: 
  Country: None (occurrence: None)
  Receive Date: 20071215
  Receipt Date: 20070712
  Transmission Date: 20080405
  Serious: No
  Sender: FDA-Public Use
  Company Number: US-AMGEN-US233939

PATIENT
  Sex: Female

DRUGS (1)
  1. ENBREL [Suspect]
     Indication: RHEUMATOID ARTHRITIS
     Route: 065
     Dates: start: 20060915

REACTIONS (5)
  - ABDOMINAL DISTENSION [None]
  - CELLULITIS [None]
  - DYSPEPSIA [None]
  - RASH [None]
  - THROAT IRRITATION [None]
